FAERS Safety Report 6377043-4 (Version None)
Quarter: 2009Q3

REPORT INFORMATION
  Report Type: 
  Country: None (occurrence: None)
  Receive Date: 20090925
  Receipt Date: 20090916
  Transmission Date: 20100115
  Serious: Yes (Hospitalization)
  Sender: FDA-Public Use
  Company Number: US-ASTRAZENECA-2009SE13532

PATIENT
  Age: 770 Month
  Sex: Female
  Weight: 70.8 kg

DRUGS (8)
  1. PULMICORT FLEXHALER [Suspect]
     Indication: CHRONIC OBSTRUCTIVE PULMONARY DISEASE
     Dosage: TWO TIMES A DAY
     Route: 055
     Dates: start: 20050101
  2. DUONEB [Concomitant]
  3. MUCINEX [Concomitant]
  4. O2 [Concomitant]
  5. UNIPHYL [Concomitant]
  6. SPIRIVA [Concomitant]
  7. PREDNISONE TAB [Concomitant]
  8. CHANTIX [Concomitant]

REACTIONS (2)
  - CHRONIC OBSTRUCTIVE PULMONARY DISEASE [None]
  - STRESS [None]
